FAERS Safety Report 5278815-X (Version None)
Quarter: 2007Q1

REPORT INFORMATION
  Report Type: 
  Country: None (occurrence: None)
  Receive Date: 20070328
  Receipt Date: 20070321
  Transmission Date: 20070707
  Serious: Yes (Life-Threatening, Hospitalization, Disabling)
  Sender: FDA-Public Use
  Company Number: US-ROCHE-487387

PATIENT
  Age: 54 Year
  Sex: Male
  Weight: 86.2 kg

DRUGS (2)
  1. PEGASYS [Suspect]
     Indication: HEPATITIS C
     Dosage: GIVEN WEEKLY
     Route: 058
     Dates: start: 20061222, end: 20070125
  2. RIBAVIRIN [Suspect]
     Indication: HEPATITIS C
     Route: 048
     Dates: start: 20061222, end: 20070125

REACTIONS (10)
  - ASTHENIA [None]
  - CANDIDIASIS [None]
  - COLITIS [None]
  - DIARRHOEA [None]
  - ENTEROCOLITIS [None]
  - GASTRITIS [None]
  - GASTROINTESTINAL DISORDER [None]
  - OESOPHAGITIS [None]
  - PSORIASIS [None]
  - WEIGHT DECREASED [None]
